FAERS Safety Report 16896024 (Version 8)
Quarter: 2020Q2

REPORT INFORMATION
  Report Type: Report from Study
  Country: US (occurrence: US)
  Receive Date: 20191008
  Receipt Date: 20200528
  Transmission Date: 20200713
  Serious: Yes (Hospitalization, Other)
  Sender: FDA-Public Use
  Company Number: US-CLOVIS ONCOLOGY-CLO-2019-002017

PATIENT
  Age: 63 Year
  Sex: Female

DRUGS (2)
  1. RUBRACA [Suspect]
     Active Substance: RUCAPARIB CAMSYLATE
     Indication: OVARIAN CANCER
     Dosage: 400 MG, BID
     Route: 048
     Dates: start: 20190921
  2. RUBRACA [Suspect]
     Active Substance: RUCAPARIB CAMSYLATE
     Dosage: 400 MG, BID
     Route: 048
     Dates: start: 202004

REACTIONS (19)
  - Carbohydrate antigen 125 increased [Recovering/Resolving]
  - Tremor [Unknown]
  - Hot flush [Unknown]
  - Constipation [Not Recovered/Not Resolved]
  - Rib fracture [Unknown]
  - Feeling abnormal [Unknown]
  - Asthenia [Unknown]
  - Syphilis [Unknown]
  - Blood sodium decreased [Unknown]
  - Nausea [Unknown]
  - Faecaloma [Unknown]
  - Blood magnesium decreased [Unknown]
  - Headache [Not Recovered/Not Resolved]
  - Loss of consciousness [Unknown]
  - Amnesia [Not Recovered/Not Resolved]
  - Dizziness [Not Recovered/Not Resolved]
  - Sjogren^s syndrome [Unknown]
  - Fatigue [Not Recovered/Not Resolved]
  - White blood cell count decreased [Recovering/Resolving]

NARRATIVE: CASE EVENT DATE: 201909
